FAERS Safety Report 19835597 (Version 1)
Quarter: 2021Q3

REPORT INFORMATION
  Report Type: Spontaneous
  Country: CH (occurrence: CH)
  Receive Date: 20210915
  Receipt Date: 20210915
  Transmission Date: 20211014
  Serious: Yes (Hospitalization)
  Sender: FDA-Public Use
  Company Number: CH-TEVA-2021-CH-1952351

PATIENT
  Age: 50 Year
  Sex: Male

DRUGS (3)
  1. CLARITHROMYCIN. [Suspect]
     Active Substance: CLARITHROMYCIN
     Indication: PNEUMONIA
     Route: 065
  2. AUGMENTIN [Interacting]
     Active Substance: AMOXICILLIN\CLAVULANATE POTASSIUM
     Indication: PNEUMONIA
     Dosage: 3 GRAM DAILY;
     Route: 065
  3. AUGMENTIN [Interacting]
     Active Substance: AMOXICILLIN\CLAVULANATE POTASSIUM
     Dosage: 1250 MILLIGRAM DAILY;
     Route: 065

REACTIONS (2)
  - Mania [Unknown]
  - Drug interaction [Unknown]
